FAERS Safety Report 5169130-3 (Version None)
Quarter: 2006Q4

REPORT INFORMATION
  Report Type: 
  Country: None (occurrence: None)
  Receive Date: 20061211
  Receipt Date: 20061206
  Transmission Date: 20070319
  Serious: Yes (Hospitalization)
  Sender: FDA-Public Use
  Company Number: US-MERCK-0612USA01004

PATIENT
  Age: 71 Year
  Sex: Female

DRUGS (1)
  1. FOSAMAX [Suspect]
     Indication: OSTEOPOROSIS
     Route: 048
     Dates: end: 20060101

REACTIONS (6)
  - DRUG INEFFECTIVE [None]
  - FALL [None]
  - HIGH TURNOVER OSTEOPATHY [None]
  - HIP FRACTURE [None]
  - JAW DISORDER [None]
  - TRISMUS [None]
